FAERS Safety Report 7301946-7 (Version None)
Quarter: 2011Q1

REPORT INFORMATION
  Report Type: 
  Country: None (occurrence: None)
  Receive Date: 20110218
  Receipt Date: 20110209
  Transmission Date: 20110831
  Serious: Yes (Death, Life-Threatening, Hospitalization)
  Sender: FDA-Public Use
  Company Number: IL-CELGENEUS-082-C5013-10122130

PATIENT
  Sex: Male
  Weight: 59 kg

DRUGS (5)
  1. LERCANIDIPINE [Concomitant]
     Route: 065
  2. HYDROCHLOROTHIAZIDE [Concomitant]
     Route: 065
  3. CC-5013 [Suspect]
     Route: 048
     Dates: start: 20101219, end: 20101219
  4. CC-5013 [Suspect]
     Indication: CHRONIC LYMPHOCYTIC LEUKAEMIA
     Route: 048
     Dates: start: 20101121
  5. BISOPROLOL [Concomitant]
     Route: 065

REACTIONS (3)
  - SEPSIS SYNDROME [None]
  - LOBAR PNEUMONIA [None]
  - MULTI-ORGAN FAILURE [None]
